FAERS Safety Report 9253164 (Version 1)
Quarter: 2013Q2

REPORT INFORMATION
  Report Type: Spontaneous
  Country: US (occurrence: US)
  Receive Date: 20130424
  Receipt Date: 20130424
  Transmission Date: 20140414
  Serious: Yes (Death)
  Sender: FDA-Public Use
  Company Number: US-FRI-1000044649

PATIENT
  Age: 99 Year
  Sex: Female

DRUGS (2)
  1. BYSTOLIC [Suspect]
     Indication: HYPERTENSION
     Dosage: 5 MG
     Route: 048
     Dates: start: 2009, end: 201302
  2. BENICAR [Concomitant]
     Indication: HYPERTENSION
     Dates: end: 201302

REACTIONS (1)
  - Pancreatic carcinoma [Fatal]
